FAERS Safety Report 12411266 (Version 1)
Quarter: 2016Q2

REPORT INFORMATION
  Report Type: Spontaneous
  Country: CZ (occurrence: CZ)
  Receive Date: 20160527
  Receipt Date: 20160527
  Transmission Date: 20160815
  Serious: Yes (Hospitalization, Other)
  Sender: FDA-Public Use
  Company Number: CZ-ASTELLAS-2016US020368

PATIENT
  Age: 67 Year
  Sex: Female

DRUGS (7)
  1. PREDNISOLONE                       /00016204/ [Suspect]
     Active Substance: PREDNISOLONE
     Route: 042
  2. MYCOPHENOLATE MOFETIL. [Suspect]
     Active Substance: MYCOPHENOLATE MOFETIL
     Indication: RENAL TRANSPLANT
     Route: 065
  3. BASILIXIMAB [Concomitant]
     Active Substance: BASILIXIMAB
     Indication: RENAL TRANSPLANT
     Dosage: UNK, UNKNOWN FREQ., 2 DOSES
     Route: 065
  4. ADVAGRAF [Suspect]
     Active Substance: TACROLIMUS
     Indication: RENAL TRANSPLANT
     Route: 065
  5. ADVAGRAF [Suspect]
     Active Substance: TACROLIMUS
     Route: 065
  6. MYCOPHENOLATE MOFETIL. [Suspect]
     Active Substance: MYCOPHENOLATE MOFETIL
     Route: 065
  7. PREDNISOLONE                       /00016204/ [Suspect]
     Active Substance: PREDNISOLONE
     Indication: RENAL TRANSPLANT
     Route: 042

REACTIONS (7)
  - Subdiaphragmatic abscess [Unknown]
  - Transplant rejection [Recovered/Resolved]
  - Pancreatitis acute [Recovered/Resolved]
  - Abdominal abscess [Unknown]
  - Cholelithiasis [Unknown]
  - Escherichia infection [Unknown]
  - Transplant failure [Recovered/Resolved]
